FAERS Safety Report 11441357 (Version 1)
Quarter: 2015Q3

REPORT INFORMATION
  Report Type: Spontaneous
  Country: US (occurrence: US)
  Receive Date: 20150821
  Receipt Date: 20150821
  Transmission Date: 20151125
  Serious: No
  Sender: FDA-Public Use
  Company Number: US-ELI_LILLY_AND_COMPANY-US200806002785

PATIENT
  Sex: Male

DRUGS (1)
  1. CYMBALTA [Suspect]
     Active Substance: DULOXETINE HYDROCHLORIDE
     Indication: NEURALGIA
     Dosage: 60 MG, DAILY (1/D)

REACTIONS (6)
  - Anger [Unknown]
  - Photopsia [Unknown]
  - Mood swings [Unknown]
  - Feeling abnormal [Unknown]
  - Abnormal dreams [Unknown]
  - Neuralgia [Unknown]
